FAERS Safety Report 8561230-0 (Version None)
Quarter: 2012Q3

REPORT INFORMATION
  Report Type: 
  Country: None (occurrence: None)
  Receive Date: 20120723
  Receipt Date: 20120705
  Transmission Date: 20120928
  Serious: Yes (Other)
  Sender: FDA-Public Use
  Company Number: ACO_30625_2012

PATIENT
  Age: 60 Year
  Sex: Female

DRUGS (5)
  1. RALENOVA (MITOXANTRONE HYDROCHLORIDE) [Concomitant]
  2. CYMBALTA [Concomitant]
  3. SIMVASTATIN [Concomitant]
  4. CANDESARTAN CILEXETIL AND HYDROCHLOROTHIAZIDE [Concomitant]
  5. AMPYRA [Suspect]
     Indication: MULTIPLE SCLEROSIS
     Dosage: 10 MG, BID, ORAL
     Route: 048
     Dates: start: 20120525

REACTIONS (3)
  - ACCIDENTAL OVERDOSE [None]
  - PARAESTHESIA [None]
  - DRUG DOSE OMISSION [None]
